FAERS Safety Report 6282587-X (Version None)
Quarter: 2009Q3

REPORT INFORMATION
  Report Type: 
  Country: None (occurrence: None)
  Receive Date: 20090724
  Receipt Date: 20090715
  Transmission Date: 20100115
  Serious: Yes (Hospitalization)
  Sender: FDA-Public Use
  Company Number: CH-JNJFOC-20090704330

PATIENT
  Age: 59 Year
  Sex: Male

DRUGS (5)
  1. DURAGESIC-100 [Suspect]
     Route: 062
  2. DURAGESIC-100 [Suspect]
     Route: 062
  3. DURAGESIC-100 [Suspect]
     Indication: PAIN
     Dosage: 25 UG/HR + 12 UG/HR
     Route: 062
  4. TRAMADOL HCL [Interacting]
     Indication: PAIN
     Route: 048
  5. DILTIAZEM [Interacting]
     Indication: DRUG USE FOR UNKNOWN INDICATION
     Route: 048

REACTIONS (8)
  - ACCIDENTAL OVERDOSE [None]
  - ALTERED STATE OF CONSCIOUSNESS [None]
  - DRUG ADMINISTRATION ERROR [None]
  - DRUG INTERACTION [None]
  - HYPERCAPNIA [None]
  - HYPOXIA [None]
  - RESPIRATORY ACIDOSIS [None]
  - RESPIRATORY DEPRESSION [None]
